FAERS Safety Report 16049662 (Version 3)
Quarter: 2019Q1

REPORT INFORMATION
  Report Type: Report from Study
  Country: NL (occurrence: NL)
  Receive Date: 20190307
  Receipt Date: 20190331
  Transmission Date: 20190418
  Serious: Yes (Other)
  Sender: FDA-Public Use
  Company Number: NL-BEH-2019099990

PATIENT
  Age: 36 Year
  Sex: Female

DRUGS (3)
  1. PRIVIGEN [Suspect]
     Active Substance: HUMAN IMMUNOGLOBULIN G
     Dosage: UNK
     Route: 042
     Dates: start: 20190130, end: 20190130
  2. PRIVIGEN [Suspect]
     Active Substance: HUMAN IMMUNOGLOBULIN G
     Indication: EPILEPTIC ENCEPHALOPATHY
     Dosage: UNK UNK, QMT
     Route: 042
  3. PRIVIGEN [Suspect]
     Active Substance: HUMAN IMMUNOGLOBULIN G
     Dosage: UNK
     Route: 042
     Dates: start: 20190225, end: 20190225

REACTIONS (3)
  - Hypotension [Unknown]
  - Hepatitis B [Unknown]
  - Hepatitis B antibody positive [Unknown]

NARRATIVE: CASE EVENT DATE: 20190219
